FAERS Safety Report 6465770-X (Version None)
Quarter: 2009Q4

REPORT INFORMATION
  Report Type: 
  Country: None (occurrence: None)
  Receive Date: 20091124
  Receipt Date: 20091112
  Transmission Date: 20100525
  Serious: Yes (Death)
  Sender: FDA-Public Use
  Company Number: 220053K09GBR

PATIENT
  Age: 49 Year
  Sex: Male
  Weight: 67 kg

DRUGS (7)
  1. SAIZEN [Suspect]
     Indication: HYPOPITUITARISM
     Dosage: 8, 1 IN 1 DAYS, SUBCUTANEOUS
     Route: 058
     Dates: start: 20080201, end: 20090815
  2. VARIOUS MEDICATIONS (ALL OTHER THERAPEUTIC PRODUCTS) [Concomitant]
  3. LISINOPRIL [Concomitant]
  4. HYDROCORTISONE (HYDROCORTISONE /00028601/) [Concomitant]
  5. ASPIRIN [Concomitant]
  6. SIMVASTATIN [Concomitant]
  7. LEVOTHYROXINE SODIUM [Concomitant]

REACTIONS (13)
  - ARTERIAL RUPTURE [None]
  - BRAIN OEDEMA [None]
  - BRAIN STEM HAEMORRHAGE [None]
  - CEREBRAL ARTERIOSCLEROSIS [None]
  - CEREBRAL CALCIFICATION [None]
  - CEREBRAL VENTRICLE DILATATION [None]
  - CEREBROVASCULAR ACCIDENT [None]
  - FALL [None]
  - NECROSIS [None]
  - NERVOUS SYSTEM DISORDER [None]
  - PAIN IN EXTREMITY [None]
  - PITUITARY INFARCTION [None]
  - SUBARACHNOID HAEMORRHAGE [None]
